FAERS Safety Report 9976068 (Version 3)
Quarter: 2014Q1

REPORT INFORMATION
  Report Type: Spontaneous
  Country: US (occurrence: US)
  Receive Date: 20140306
  Receipt Date: 20140318
  Transmission Date: 20141002
  Serious: No
  Sender: FDA-Public Use
  Company Number: US-ASTRAZENECA-2013SE69849

PATIENT
  Age: 80 Year
  Sex: Female
  Weight: 93 kg

DRUGS (10)
  1. TOPROL XL [Suspect]
     Indication: HYPERTROPHIC CARDIOMYOPATHY
     Route: 048
     Dates: start: 20130823
  2. TOPROL XL [Suspect]
     Indication: AORTIC STENOSIS
     Route: 048
     Dates: start: 20130823
  3. TOPROL XL [Suspect]
     Indication: BLOOD PRESSURE SYSTOLIC ABNORMAL
     Route: 048
     Dates: start: 20130823
  4. CRESTOR [Suspect]
     Indication: BLOOD CHOLESTEROL ABNORMAL
     Route: 048
     Dates: start: 20131115
  5. CRESTOR [Suspect]
     Indication: BLOOD CHOLESTEROL ABNORMAL
     Route: 048
     Dates: start: 201311
  6. LIPITOR [Suspect]
     Route: 065
  7. VERAPAMIL [Concomitant]
     Indication: HYPERTROPHIC CARDIOMYOPATHY
     Route: 048
  8. FUROSEMIDE [Concomitant]
     Indication: FLUID RETENTION
     Dosage: 20MG
     Route: 048
  9. ASPIRIN [Concomitant]
     Indication: ANTICOAGULANT THERAPY
     Route: 048
  10. EVISTA [Concomitant]
     Indication: OSTEOPOROSIS
     Route: 048

REACTIONS (13)
  - Blood pressure systolic increased [Unknown]
  - Therapeutic response unexpected [Unknown]
  - Toothache [Unknown]
  - Overweight [Unknown]
  - Blood glucose increased [Unknown]
  - Dyspnoea [Unknown]
  - Malaise [Unknown]
  - Cardiac disorder [Unknown]
  - Blood creatine phosphokinase increased [Unknown]
  - Tearfulness [Unknown]
  - Fatigue [Unknown]
  - Muscle spasms [Unknown]
  - Off label use [Unknown]
